FAERS Safety Report 6934245-3 (Version None)
Quarter: 2010Q3

REPORT INFORMATION
  Report Type: 
  Country: None (occurrence: None)
  Receive Date: 20100820
  Receipt Date: 20100812
  Transmission Date: 20110219
  Serious: Yes (Other)
  Sender: FDA-Public Use
  Company Number: US-PFIZER INC-2010102368

PATIENT
  Sex: Female

DRUGS (5)
  1. LIPITOR [Suspect]
     Dosage: UNK
  2. SIMVASTATIN [Suspect]
     Dosage: UNK
  3. VYTORIN [Suspect]
     Dosage: UNK
  4. CRESTOR [Suspect]
     Dosage: UNK
  5. ZOCOR [Suspect]
     Dosage: UNK

REACTIONS (3)
  - HEPATIC ENZYME INCREASED [None]
  - MUSCLE SPASMS [None]
  - MYALGIA [None]
